FAERS Safety Report 7530006-5 (Version None)
Quarter: 2011Q2

REPORT INFORMATION
  Report Type: 
  Country: None (occurrence: None)
  Receive Date: 20110527
  Receipt Date: 20110519
  Transmission Date: 20111010
  Serious: Yes (Other)
  Sender: FDA-Public Use
  Company Number: 2011SP020540

PATIENT
  Age: 59 Year
  Sex: Female
  Weight: 135 kg

DRUGS (1)
  1. CLARITIN REDITABS [Suspect]
     Indication: RASH
     Dosage: 10 MG;QD;PO
     Route: 048
     Dates: start: 20110502, end: 20110503

REACTIONS (1)
  - DRUG HYPERSENSITIVITY [None]
